FAERS Safety Report 19183530 (Version 1)
Quarter: 2021Q2

REPORT INFORMATION
  Report Type: Spontaneous
  Country: JP (occurrence: JP)
  Receive Date: 20210427
  Receipt Date: 20210427
  Transmission Date: 20210717
  Serious: Yes (Other)
  Sender: FDA-Public Use
  Company Number: NVSJ2021JP006287

PATIENT
  Sex: Female

DRUGS (1)
  1. ENERZAIR [Suspect]
     Active Substance: GLYCOPYRROLATE\INDACATEROL\MOMETASONE FUROATE
     Indication: ASTHMA
     Dosage: 1 DF: INDACATEROL 150UG,GLYCOPYRRONIUM 50UG,MOMETASONE FUROATE 80UG
     Route: 055

REACTIONS (1)
  - Angina pectoris [Unknown]
